FAERS Safety Report 8940558 (Version 1)
Quarter: 2012Q4

REPORT INFORMATION
  Report Type: Report from Study
  Country: RS (occurrence: RS)
  Receive Date: 20121203
  Receipt Date: 20121203
  Transmission Date: 20130627
  Serious: Yes (Hospitalization)
  Sender: FDA-Public Use
  Company Number: RS-ROCHE-1162605

PATIENT
  Sex: Female
  Weight: 55 kg

DRUGS (11)
  1. TOCILIZUMAB [Suspect]
     Indication: INFLAMMATION
     Route: 065
     Dates: start: 20101001
  2. PREDNISONE [Concomitant]
  3. PARACETAMOL [Concomitant]
  4. HYDROCHLOROTHIAZIDE [Concomitant]
  5. FOLIC ACID [Concomitant]
  6. FLUOXETINE [Concomitant]
  7. CALCIUM CARBONATE/VITAMIN D NOS [Concomitant]
  8. SIMVASTATIN [Concomitant]
  9. METHOTREXATE [Concomitant]
  10. ARAVA [Concomitant]
  11. IBUPROFEN [Concomitant]

REACTIONS (1)
  - Arthropathy [Recovered/Resolved]
